FAERS Safety Report 5479690-0 (Version None)
Quarter: 2007Q4

REPORT INFORMATION
  Report Type: 
  Country: None (occurrence: None)
  Receive Date: 20071008
  Receipt Date: 20071004
  Transmission Date: 20080405
  Serious: Yes (Other)
  Sender: FDA-Public Use
  Company Number: B0490172A

PATIENT
  Age: 11 Year
  Sex: Male

DRUGS (1)
  1. CEFUROXIME [Suspect]
     Dosage: 1000MG PER DAY
     Route: 048
     Dates: start: 20070401, end: 20070402

REACTIONS (3)
  - RASH MACULO-PAPULAR [None]
  - TONGUE OEDEMA [None]
  - URTICARIA [None]
